FAERS Safety Report 13176479 (Version 1)
Quarter: 2017Q1

REPORT INFORMATION
  Report Type: Report from Study
  Country: US (occurrence: US)
  Receive Date: 20170201
  Receipt Date: 20170201
  Transmission Date: 20170428
  Serious: Yes (Other)
  Sender: FDA-Public Use
  Company Number: US-MYLANLABS-2017M1005800

PATIENT

DRUGS (2)
  1. DOVITINIB [Interacting]
     Active Substance: DOVITINIB LACTATE
     Indication: NON-SMALL CELL LUNG CANCER METASTATIC
     Dosage: 200 MG/DAY 5 DAYS A WEEK FOLLOWED BY TWO DAYS OFF
     Route: 048
  2. ERLOTINIB [Suspect]
     Active Substance: ERLOTINIB
     Indication: NON-SMALL CELL LUNG CANCER METASTATIC
     Dosage: 150 MG DAILY
     Route: 048

REACTIONS (3)
  - Drug level decreased [Unknown]
  - Pulmonary embolism [Unknown]
  - Drug interaction [Unknown]
